FAERS Safety Report 20941886 (Version 2)
Quarter: 2022Q3

REPORT INFORMATION
  Report Type: Other
  Country: HR (occurrence: HR)
  Receive Date: 20220610
  Receipt Date: 20220718
  Transmission Date: 20221027
  Serious: Yes (Hospitalization, Other)
  Sender: FDA-Public Use
  Company Number: HR-CELLTRION INC.-2022HR008574

PATIENT

DRUGS (10)
  1. INFLIXIMAB [Suspect]
     Active Substance: INFLIXIMAB
     Indication: Spondylitis
     Dosage: 5 MG/KG
     Dates: start: 202203
  2. INFLIXIMAB [Suspect]
     Active Substance: INFLIXIMAB
     Dosage: 5 MG/KG
     Dates: start: 201909, end: 201911
  3. CELECOXIB [Concomitant]
     Active Substance: CELECOXIB
     Indication: Spondylitis
     Dosage: UNKNOWN
  4. SECUKINUMAB [Concomitant]
     Active Substance: SECUKINUMAB
     Indication: Spondylitis
     Dosage: UNKNOWN
     Dates: start: 201901
  5. IBUPROFEN [Concomitant]
     Active Substance: IBUPROFEN
     Indication: Spondylitis
     Dosage: UNKNOWN
  6. PREDNISONE [Concomitant]
     Active Substance: PREDNISONE
     Indication: Spondylitis
     Dosage: UNKNOWN
  7. SULFASALAZINE [Concomitant]
     Active Substance: SULFASALAZINE
     Indication: Spondylitis
     Dosage: UNKNOWN
  8. METHOTREXATE [Concomitant]
     Active Substance: METHOTREXATE
     Indication: Spondylitis
     Dosage: UNKNOWN
  9. MEDROL [Concomitant]
     Active Substance: METHYLPREDNISOLONE
     Indication: Spondylitis
     Dosage: 8 PLUS 8 MG
  10. KETOPROFEN [Concomitant]
     Active Substance: KETOPROFEN
     Indication: Spondylitis
     Dosage: UNKNOWN

REACTIONS (2)
  - Diverticulitis [Unknown]
  - Product use in unapproved indication [Unknown]

NARRATIVE: CASE EVENT DATE: 20191101
